FAERS Safety Report 4506971-7 (Version None)
Quarter: 2005Q1

REPORT INFORMATION
  Report Type: 
  Country: None (occurrence: None)
  Receive Date: 20041025
  Receipt Date: 20040723
  Transmission Date: 20050727
  Serious: Yes (Hospitalization, Other)
  Sender: FDA-Public Use
  Company Number: US-JNJFOC-20040707141

PATIENT
  Age: 21 Year
  Sex: Male

DRUGS (1)
  1. INFLIXIMAB (INFLIXIMAB, RECOMBINANT) LYOPHILIZED POWDER [Suspect]
     Indication: CROHN'S DISEASE
     Dosage: INTRAVENOUS
     Route: 042

REACTIONS (3)
  - CONDITION AGGRAVATED [None]
  - CROHN'S DISEASE [None]
  - SERUM SICKNESS [None]
